FAERS Safety Report 23804684 (Version 2)
Quarter: 2024Q2

REPORT INFORMATION
  Report Type: Spontaneous
  Country: US (occurrence: US)
  Receive Date: 20240501
  Receipt Date: 20240626
  Transmission Date: 20240716
  Serious: No
  Sender: FDA-Public Use
  Company Number: US-IDORSIA-007900-2024-US

PATIENT
  Sex: Male

DRUGS (1)
  1. QUVIVIQ [Suspect]
     Active Substance: DARIDOREXANT
     Indication: Insomnia
     Dosage: 50 MG, QD
     Route: 048
     Dates: start: 2023

REACTIONS (3)
  - Insomnia [Not Recovered/Not Resolved]
  - Product availability issue [Not Recovered/Not Resolved]
  - Product delivery mechanism issue [Unknown]
